FAERS Safety Report 5638259-5 (Version None)
Quarter: 2008Q1

REPORT INFORMATION
  Report Type: 
  Country: None (occurrence: None)
  Receive Date: 20080131
  Receipt Date: 20071031
  Transmission Date: 20080703
  Serious: No
  Sender: FDA-Public Use
  Company Number: 163-21880-07110093

PATIENT
  Age: 68 Year
  Sex: Male

DRUGS (2)
  1. REVLIMID [Suspect]
     Indication: MULTIPLE MYELOMA
     Dosage: 25 MG, QD X21 DAYS X28D, ORAL ; 15 MG, QOD, ORAL
     Route: 048
     Dates: start: 20071009, end: 20071030
  2. REVLIMID [Suspect]
     Indication: MULTIPLE MYELOMA
     Dosage: 25 MG, QD X21 DAYS X28D, ORAL ; 15 MG, QOD, ORAL
     Route: 048
     Dates: start: 20071102

REACTIONS (4)
  - DYSPNOEA [None]
  - FATIGUE [None]
  - MUSCULOSKELETAL CHEST PAIN [None]
  - PARAPROTEINAEMIA [None]
